FAERS Safety Report 4372582-X (Version None)
Quarter: 2004Q2

REPORT INFORMATION
  Report Type: 
  Country: None (occurrence: None)
  Receive Date: 20040526
  Receipt Date: 20040512
  Transmission Date: 20050107
  Serious: Yes (Hospitalization)
  Sender: FDA-Public Use
  Company Number: USA-2004-0014815

PATIENT
  Age: 54 Year
  Sex: Female
  Weight: 74.8 kg

DRUGS (7)
  1. MS CONTIN [Suspect]
     Indication: PAIN
     Dosage: 60 MG
  2. MORPHINE SULFATE [Suspect]
     Indication: PAIN
     Dosage: 5 MG, Q4H
  3. ZANAFLEX [Concomitant]
  4. VALIUM [Concomitant]
  5. DOCUSATE SODIUM [Concomitant]
  6. PROTONIX [Concomitant]
  7. TEMAZEPAM [Concomitant]

REACTIONS (9)
  - ABDOMINAL DISTENSION [None]
  - ASTHENIA [None]
  - CONSTIPATION [None]
  - DECREASED APPETITE [None]
  - DIARRHOEA [None]
  - DYSPNOEA [None]
  - GASTROOESOPHAGEAL REFLUX DISEASE [None]
  - PAIN EXACERBATED [None]
  - WEIGHT DECREASED [None]
